FAERS Safety Report 7573287-4 (Version None)
Quarter: 2011Q2

REPORT INFORMATION
  Report Type: 
  Country: None (occurrence: None)
  Receive Date: 20110627
  Receipt Date: 20110614
  Transmission Date: 20111010
  Serious: Yes (Hospitalization)
  Sender: FDA-Public Use
  Company Number: PHHY2011CA21287

PATIENT
  Sex: Female

DRUGS (3)
  1. ZOLEDRONIC ACID [Suspect]
     Indication: OSTEOPOROSIS
     Dosage: 5 MG, YEARLY
     Route: 042
     Dates: start: 20100326
  2. ANTIBIOTICS [Concomitant]
  3. OXYGEN [Concomitant]

REACTIONS (3)
  - PNEUMONIA [None]
  - UPPER RESPIRATORY TRACT INFECTION [None]
  - INFLUENZA [None]
